FAERS Safety Report 6793499-7 (Version None)
Quarter: 2010Q2

REPORT INFORMATION
  Report Type: 
  Country: None (occurrence: None)
  Receive Date: 20100624
  Receipt Date: 20100609
  Transmission Date: 20101027
  Serious: Yes (Other)
  Sender: FDA-Public Use
  Company Number: US-MYLANLABS-2010S1006534

PATIENT
  Age: 31 Year
  Sex: Male
  Weight: 102.51 kg

DRUGS (8)
  1. CLOZAPINE [Suspect]
     Indication: SCHIZOPHRENIA
     Dates: start: 20030101, end: 20100415
  2. CLOZAPINE [Suspect]
     Route: 048
     Dates: start: 20030101, end: 20100415
  3. COGENTIN [Concomitant]
  4. PROZAC [Concomitant]
  5. LITHIUM [Concomitant]
  6. DEPAKOTE [Concomitant]
  7. KLONOPIN [Concomitant]
  8. SYNTHROID [Concomitant]

REACTIONS (2)
  - GRANULOCYTOPENIA [None]
  - LEUKOPENIA [None]
